FAERS Safety Report 8819263 (Version 1)
Quarter: 2012Q4

REPORT INFORMATION
  Report Type: 
  Country: GR (occurrence: None)
  Receive Date: 20121003
  Receipt Date: 20121003
  Transmission Date: 20130627
  Serious: Yes (Other)
  Sender: FDA-Public Use
  Company Number: B0834124A

PATIENT
  Age: 60 Year
  Sex: Female

DRUGS (1)
  1. CEFUROXIME SODIUM [Suspect]
     Indication: PRODUCT USED FOR UNKNOWN INDICATION
     Route: 042

REACTIONS (7)
  - Arteriospasm coronary [None]
  - Hypersensitivity [None]
  - Accidental exposure to product [None]
  - Myocardial ischaemia [None]
  - Kounis syndrome [None]
  - Mental status changes [None]
  - Blood pressure decreased [None]
